FAERS Safety Report 7420532-1 (Version None)
Quarter: 2011Q2

REPORT INFORMATION
  Report Type: 
  Country: None (occurrence: None)
  Receive Date: 20110418
  Receipt Date: 20110411
  Transmission Date: 20111010
  Serious: Yes (Other)
  Sender: FDA-Public Use
  Company Number: CN-JNJFOC-20110405537

PATIENT
  Sex: Female

DRUGS (2)
  1. DAKTARIN [Suspect]
     Indication: TINEA PEDIS
     Dosage: QUANTITY SUFFICIENT
     Route: 061
  2. DAKTARIN [Suspect]
     Route: 061

REACTIONS (1)
  - BLISTER [None]
